FAERS Safety Report 4270805-9 (Version None)
Quarter: 2004Q1

REPORT INFORMATION
  Report Type: 
  Country: None (occurrence: None)
  Receive Date: 20040113
  Receipt Date: 20040107
  Transmission Date: 20041129
  Serious: Yes (Hospitalization)
  Sender: FDA-Public Use
  Company Number: FR-JNJFOC-20040100972

PATIENT
  Age: 56 Year
  Sex: Female
  Weight: 38 kg

DRUGS (5)
  1. REMICADE [Suspect]
     Indication: RHEUMATOID ARTHRITIS
     Dosage: SEE IMAGE
     Route: 042
     Dates: start: 20020906, end: 20030821
  2. REMICADE [Suspect]
     Indication: RHEUMATOID ARTHRITIS
     Dosage: SEE IMAGE
     Route: 042
     Dates: start: 20030821, end: 20030821
  3. BETNESOL (BETAMETHASONE SODIUM PHOSPHATE) [Concomitant]
  4. CELEBREX [Concomitant]
  5. ARAVA [Concomitant]

REACTIONS (6)
  - ARTHRITIS BACTERIAL [None]
  - BURSITIS [None]
  - PYREXIA [None]
  - RHEUMATOID ARTHRITIS [None]
  - SECRETION DISCHARGE [None]
  - STAPHYLOCOCCAL BACTERAEMIA [None]
